FAERS Safety Report 8033140-9 (Version None)
Quarter: 2012Q1

REPORT INFORMATION
  Report Type: 
  Country: None (occurrence: None)
  Receive Date: 20120110
  Receipt Date: 20120110
  Transmission Date: 20120608
  Serious: Yes (Other)
  Sender: FDA-Public Use
  Company Number: None

PATIENT
  Age: 23 Year
  Sex: Female

DRUGS (1)
  1. AMPHETAMINES [Suspect]
     Dates: start: 20111017, end: 20111017

REACTIONS (1)
  - ABDOMINAL PAIN UPPER [None]
